FAERS Safety Report 7152400-7 (Version None)
Quarter: 2010Q4

REPORT INFORMATION
  Report Type: 
  Country: None (occurrence: None)
  Receive Date: 20101124
  Receipt Date: 20101117
  Transmission Date: 20110411
  Serious: Yes (Hospitalization)
  Sender: FDA-Public Use
  Company Number: ESP10000144

PATIENT
  Age: 54 Year
  Sex: Female

DRUGS (1)
  1. ACREL (RISEDRONATE SODIUM) TABLET, 75MG [Suspect]
     Indication: OSTEOPOROSIS
     Dosage: 75 MG, 2 CD/MONTH, ORAL
     Route: 048
     Dates: start: 20100701, end: 20100701

REACTIONS (3)
  - CHEST PAIN [None]
  - CHOLINERGIC SYNDROME [None]
  - VOMITING [None]
